FAERS Safety Report 14971704 (Version 5)
Quarter: 2018Q4

REPORT INFORMATION
  Report Type: Report from Study
  Country: None (occurrence: US)
  Receive Date: 20180604
  Receipt Date: 20181011
  Transmission Date: 20190204
  Serious: Yes (Hospitalization)
  Sender: FDA-Public Use
  Company Number: US-ABBVIE-18K-163-2373146-00

PATIENT
  Sex: Female

DRUGS (1)
  1. HUMIRA [Suspect]
     Active Substance: ADALIMUMAB
     Indication: RHEUMATOID ARTHRITIS
     Route: 058
     Dates: start: 201708

REACTIONS (9)
  - Migraine [Unknown]
  - Dysarthria [Unknown]
  - Cholelithiasis [Unknown]
  - Dizziness [Not Recovered/Not Resolved]
  - Swelling [Unknown]
  - Facial paralysis [Unknown]
  - Gait disturbance [Unknown]
  - Meningitis [Unknown]
  - Balance disorder [Unknown]

NARRATIVE: CASE EVENT DATE: 2018
